FAERS Safety Report 9366776 (Version 1)
Quarter: 2013Q2

REPORT INFORMATION
  Report Type: Spontaneous
  Country: FR (occurrence: FR)
  Receive Date: 20130625
  Receipt Date: 20130625
  Transmission Date: 20140414
  Serious: Yes (Hospitalization)
  Sender: FDA-Public Use
  Company Number: FR-JNJFOC-20130611286

PATIENT
  Age: 89 Year
  Sex: Female

DRUGS (14)
  1. XARELTO [Suspect]
     Indication: CEREBROVASCULAR ACCIDENT PROPHYLAXIS
     Route: 048
     Dates: start: 201303, end: 20130504
  2. XARELTO [Suspect]
     Indication: ATRIAL FIBRILLATION
     Route: 048
     Dates: start: 201303, end: 20130504
  3. PERINDOPRIL [Concomitant]
     Route: 065
  4. ESOMEPRAZOLE [Concomitant]
     Route: 065
  5. LASILIX [Concomitant]
     Route: 065
  6. KAYEXALATE [Concomitant]
     Route: 065
  7. LEVOTHYROX [Concomitant]
     Route: 065
  8. LEXOMIL [Concomitant]
     Route: 065
  9. TRIMEBUTINE [Concomitant]
     Route: 065
  10. TRINIPATCH [Concomitant]
     Route: 065
  11. EFFEXOR [Concomitant]
     Route: 065
  12. INNOVAIR [Concomitant]
     Route: 065
  13. DOLIPRANE [Concomitant]
     Route: 065
  14. KARDEGIC [Concomitant]
     Route: 065

REACTIONS (3)
  - Abdominal pain [Recovered/Resolved]
  - Vomiting [Recovered/Resolved]
  - Nausea [Recovered/Resolved]
